FAERS Safety Report 12074642 (Version 3)
Quarter: 2016Q2

REPORT INFORMATION
  Report Type: Spontaneous
  Country: BR (occurrence: BR)
  Receive Date: 20160212
  Receipt Date: 20160602
  Transmission Date: 20160815
  Serious: Yes (Other)
  Sender: FDA-Public Use
  Company Number: BR-ABBVIE-16P-020-1559725-00

PATIENT
  Age: 1 Year
  Sex: Female
  Weight: 25 kg

DRUGS (4)
  1. DEPAKOTE [Suspect]
     Active Substance: DIVALPROEX SODIUM
     Indication: FEBRILE CONVULSION
     Dosage: 125 MG IN THE MORNING AND AT NIGHT; DAILY DOSE: 250 MG
     Route: 048
     Dates: start: 20100726, end: 201601
  2. OSPOLOT [Concomitant]
     Active Substance: SULTHIAME
     Dosage: DAILY DOSE: 1 TABLET AT NIGHT
     Route: 048
  3. DEPAKOTE [Suspect]
     Active Substance: DIVALPROEX SODIUM
     Dosage: 125 MG IN THE MORNING: DAILY DOSE: 125MG
     Route: 048
     Dates: start: 201601, end: 201603
  4. OSPOLOT [Concomitant]
     Active Substance: SULTHIAME
     Indication: SEIZURE
     Dosage: IN THE MORNING,AND AT NIGHT; DAILY DOSE: 100 MG
     Route: 048
     Dates: start: 20160108, end: 20160203

REACTIONS (5)
  - Hallucination [Recovered/Resolved]
  - Product use issue [Unknown]
  - Tachycardia [Recovered/Resolved]
  - Terminal insomnia [Recovered/Resolved]
  - Pruritus [Recovered/Resolved]

NARRATIVE: CASE EVENT DATE: 20100726
